FAERS Safety Report 5008269-X (Version None)
Quarter: 2006Q2

REPORT INFORMATION
  Report Type: 
  Country: None (occurrence: None)
  Receive Date: 20060523
  Receipt Date: 20050527
  Transmission Date: 20061013
  Serious: Yes (Death, Hospitalization)
  Sender: FDA-Public Use
  Company Number: US-GLAXOSMITHKLINE-A0560378A

PATIENT
  Sex: Female

DRUGS (2)
  1. FLOLAN [Suspect]
     Route: 042
  2. UNKNOWN [Concomitant]

REACTIONS (1)
  - DEATH [None]
